FAERS Safety Report 25137995 (Version 4)
Quarter: 2025Q4

REPORT INFORMATION
  Report Type: Spontaneous
  Country: US (occurrence: US)
  Receive Date: 20250329
  Receipt Date: 20251130
  Transmission Date: 20260117
  Serious: No
  Sender: SANOFI AVENTIS
  Company Number: US-SA-2025SA089832

PATIENT
  Age: 59 Year
  Sex: Female

DRUGS (2)
  1. DUPIXENT [Suspect]
     Active Substance: DUPILUMAB
     Indication: Dermatitis atopic
     Dosage: 300 MG, QOW
     Route: 058
     Dates: start: 20240925
  2. DUPIXENT [Suspect]
     Active Substance: DUPILUMAB
     Indication: Nasal polyps

REACTIONS (9)
  - Nasal congestion [Unknown]
  - Anosmia [Unknown]
  - Condition aggravated [Unknown]
  - Intentional dose omission [Unknown]
  - Bone pain [Unknown]
  - Swelling [Unknown]
  - Injection site swelling [Unknown]
  - Arthralgia [Unknown]
  - Product dose omission in error [Unknown]
